FAERS Safety Report 8113538-0 (Version None)
Quarter: 2012Q1

REPORT INFORMATION
  Report Type: 
  Country: None (occurrence: None)
  Receive Date: 20120131
  Receipt Date: 20120119
  Transmission Date: 20120608
  Serious: Yes (Disabling)
  Sender: FDA-Public Use
  Company Number: 2011-4922

PATIENT

DRUGS (6)
  1. ASPIRIN [Concomitant]
  2. CYMBALTA [Concomitant]
  3. DYSPORT [Suspect]
  4. DYSPORT [Suspect]
     Indication: MUSCLE SPASTICITY
     Dosage: 1000 UNITS (1000 UNITS, SINGLE CYCLE), INTRAMUSCULAR
     Route: 030
     Dates: start: 20100707, end: 20100707
  5. VALIUM [Concomitant]
  6. LIORESAL [Concomitant]

REACTIONS (1)
  - OCULAR MYASTHENIA [None]
